FAERS Safety Report 12934200 (Version 1)
Quarter: 2016Q4

REPORT INFORMATION
  Report Type: Spontaneous
  Country: US (occurrence: US)
  Receive Date: 20161111
  Receipt Date: 20161111
  Transmission Date: 20170207
  Serious: Yes (Hospitalization, Other)
  Sender: FDA-Public Use
  Company Number: US-SAOL THERAPEUTICS-2016SAO00597

PATIENT
  Age: 33 Year
  Sex: Female

DRUGS (3)
  1. BACLOFEN. [Suspect]
     Active Substance: BACLOFEN
     Dosage: UNK
     Dates: start: 201502
  2. BACLOFEN. [Suspect]
     Active Substance: BACLOFEN
     Indication: SPINAL CORD INJURY
     Dosage: 1200 ?G, \DAY
     Dates: start: 201501, end: 201602
  3. BACLOFEN. [Suspect]
     Active Substance: BACLOFEN
     Indication: MUSCLE SPASTICITY
     Dosage: UNK
     Route: 037
     Dates: end: 201501

REACTIONS (13)
  - Device damage [Unknown]
  - Red blood cell sedimentation rate increased [Unknown]
  - Meningitis [Unknown]
  - Device dislocation [Recovered/Resolved]
  - Drug withdrawal syndrome [Unknown]
  - Depression [Unknown]
  - Muscle spasms [Unknown]
  - Implant site extravasation [Unknown]
  - Staphylococcal infection [Unknown]
  - Blood creatine phosphokinase increased [Unknown]
  - C-reactive protein [Unknown]
  - Implant site infection [Unknown]
  - Pain [Unknown]

NARRATIVE: CASE EVENT DATE: 2014
